FAERS Safety Report 8060044-8 (Version None)
Quarter: 2012Q1

REPORT INFORMATION
  Report Type: 
  Country: None (occurrence: None)
  Receive Date: 20120120
  Receipt Date: 20120118
  Transmission Date: 20120608
  Serious: Yes (Hospitalization)
  Sender: FDA-Public Use
  Company Number: US-AMGEN-USACT2012000117

PATIENT
  Age: 41 Year
  Sex: Male

DRUGS (4)
  1. ETANERCEPT [Suspect]
     Indication: PSORIASIS
     Dosage: 50 MG, QWK
     Route: 058
     Dates: start: 20050120, end: 20110910
  2. TEMOVATE [Concomitant]
     Route: 061
  3. DOVONEX [Concomitant]
     Route: 061
  4. ULTRAVATE [Concomitant]
     Route: 061

REACTIONS (1)
  - ORGANISING PNEUMONIA [None]
